FAERS Safety Report 9124790 (Version 1)
Quarter: 2013Q1

REPORT INFORMATION
  Report Type: Spontaneous
  Country: JP (occurrence: JP)
  Receive Date: 20130117
  Receipt Date: 20130117
  Transmission Date: 20140127
  Serious: Yes (Other)
  Sender: FDA-Public Use
  Company Number: PHHY2012JP118513

PATIENT
  Sex: Female

DRUGS (1)
  1. VOLTAREN [Suspect]
     Indication: PAIN
     Dosage: 100 MG DAILY
     Route: 048
     Dates: start: 201212, end: 201212

REACTIONS (2)
  - Foetal death [Unknown]
  - Maternal exposure during pregnancy [Unknown]
